FAERS Safety Report 9251300 (Version 3)
Quarter: 2013Q3

REPORT INFORMATION
  Report Type: Report from Study
  Country: US (occurrence: US)
  Receive Date: 20130424
  Receipt Date: 20130701
  Transmission Date: 20140515
  Serious: Yes (Life-Threatening, Hospitalization)
  Sender: FDA-Public Use
  Company Number: US-PFIZER INC-2013058006

PATIENT
  Age: 59 Year
  Sex: Female
  Weight: 73.4 kg

DRUGS (6)
  1. SIROLIMUS [Suspect]
     Indication: PROPHYLAXIS AGAINST TRANSPLANT REJECTION
     Dosage: 3 MG, 1X/DAY
     Route: 048
     Dates: start: 20120131, end: 20130121
  2. LASIX [Concomitant]
     Indication: FLUID RETENTION
     Dosage: 40 MG, BID
     Route: 048
     Dates: start: 20120128
  3. METOPROLOL [Concomitant]
     Indication: HYPERTENSION
     Dosage: 50 MG, BID
     Route: 048
     Dates: start: 20110625
  4. INSULIN PUMP [Concomitant]
     Indication: DIABETES MELLITUS
     Dosage: 0.6 IU PER HOUR
     Route: 058
     Dates: start: 2000
  5. CELLCEPT [Concomitant]
     Indication: IMMUNOSUPPRESSION
     Dosage: 1000 MG, 2X/DAY
     Route: 048
     Dates: start: 20110126
  6. PROGRAF [Concomitant]
     Dosage: UNK

REACTIONS (2)
  - Lung adenocarcinoma [Not Recovered/Not Resolved]
  - Kidney transplant rejection [Recovered/Resolved with Sequelae]
